FAERS Safety Report 4893716-4 (Version None)
Quarter: 2006Q1

REPORT INFORMATION
  Report Type: 
  Country: None (occurrence: None)
  Receive Date: 20060127
  Receipt Date: 20051110
  Transmission Date: 20060701
  Serious: Yes (Disabling)
  Sender: FDA-Public Use
  Company Number: FR-GLAXOSMITHKLINE-B0401000A

PATIENT
  Age: 13 Year
  Sex: Male
  Weight: 55 kg

DRUGS (5)
  1. BECOTIDE [Suspect]
     Indication: ASTHMA
     Dosage: 1PUFF SEE DOSAGE TEXT
     Route: 055
     Dates: start: 19961101, end: 20000330
  2. VENTOLIN [Concomitant]
     Indication: ASTHMA
     Dosage: 1PUFF TWICE PER DAY
     Route: 055
     Dates: start: 19960101, end: 20000101
  3. SEREVENT [Concomitant]
     Indication: ASTHMA
     Dates: start: 19960101, end: 20000101
  4. ZYRTEC [Concomitant]
     Indication: ASTHMA
     Dates: start: 19960101, end: 20000101
  5. LOMUDAL [Concomitant]
     Indication: ASTHMA
     Dates: start: 19960101, end: 20000101

REACTIONS (2)
  - CATARACT [None]
  - VISUAL ACUITY REDUCED [None]
